FAERS Safety Report 4831430-1 (Version None)
Quarter: 2005Q4

REPORT INFORMATION
  Report Type: 
  Country: None (occurrence: None)
  Receive Date: 20051116
  Receipt Date: 20051116
  Transmission Date: 20060501
  Serious: Yes (Other)
  Sender: FDA-Public Use
  Company Number: None

PATIENT
  Sex: Female
  Weight: 74 kg

DRUGS (8)
  1. CYMBALTA [Suspect]
     Indication: DEPRESSION
     Dosage: 30 MG QD PO
     Route: 048
     Dates: start: 20050926, end: 20051012
  2. ASPIRIN [Concomitant]
  3. PLAVIX [Concomitant]
  4. IMDUR [Concomitant]
  5. COZAAR [Concomitant]
  6. NORVASC [Concomitant]
  7. PREVACID [Concomitant]
  8. MULTI-VITAMIN [Concomitant]

REACTIONS (2)
  - BLOOD CREATINE PHOSPHOKINASE INCREASED [None]
  - DRUG INTERACTION [None]
